FAERS Safety Report 5763973-0 (Version None)
Quarter: 2008Q2

REPORT INFORMATION
  Report Type: 
  Country: None (occurrence: None)
  Receive Date: 20080609
  Receipt Date: 20080317
  Transmission Date: 20081010
  Serious: No
  Sender: FDA-Public Use
  Company Number: 002#2#2008-00125

PATIENT
  Age: 57 Year
  Sex: Female
  Weight: 58.9676 kg

DRUGS (3)
  1. NEUPRO [Suspect]
     Indication: PARKINSON'S DISEASE
     Dosage: 6MG/24H,1 IN 1 D,TRANSDERMAL ; 4MG/24H,1 IN 1 D,TRANSDERMAL ; 2MG/24H,1 IN 1 D,TRANSDERMAL
     Route: 062
     Dates: start: 20080101, end: 20080101
  2. NEUPRO [Suspect]
     Indication: PARKINSON'S DISEASE
     Dosage: 6MG/24H,1 IN 1 D,TRANSDERMAL ; 4MG/24H,1 IN 1 D,TRANSDERMAL ; 2MG/24H,1 IN 1 D,TRANSDERMAL
     Route: 062
     Dates: start: 20080101, end: 20080201
  3. NEUPRO [Suspect]
     Indication: PARKINSON'S DISEASE
     Dosage: 6MG/24H,1 IN 1 D,TRANSDERMAL ; 4MG/24H,1 IN 1 D,TRANSDERMAL ; 2MG/24H,1 IN 1 D,TRANSDERMAL
     Route: 062
     Dates: start: 20080201

REACTIONS (5)
  - APPLICATION SITE ERYTHEMA [None]
  - APPLICATION SITE PRURITUS [None]
  - APPLICATION SITE REACTION [None]
  - INSOMNIA [None]
  - PHARMACEUTICAL PRODUCT COMPLAINT [None]
